FAERS Safety Report 9882405 (Version 1)
Quarter: 2014Q1

REPORT INFORMATION
  Report Type: Spontaneous
  Country: US (occurrence: US)
  Receive Date: 20140207
  Receipt Date: 20140207
  Transmission Date: 20141002
  Serious: Yes (Other)
  Sender: FDA-Public Use
  Company Number: US-PFIZER INC-2014035344

PATIENT
  Age: 74 Year
  Sex: Male
  Weight: 70.3 kg

DRUGS (1)
  1. ATORVASTATIN CALCIUM [Suspect]
     Dosage: UNK, 1X/DAY
     Route: 048
     Dates: start: 2013, end: 201401

REACTIONS (12)
  - Loss of consciousness [Unknown]
  - Weight decreased [Unknown]
  - Myalgia [Unknown]
  - Tenderness [Unknown]
  - Asthenia [Unknown]
  - Memory impairment [Unknown]
  - Thirst [Unknown]
  - Pollakiuria [Unknown]
  - Somnolence [Unknown]
  - Decreased appetite [Unknown]
  - Dry mouth [Unknown]
  - Fatigue [Unknown]
